FAERS Safety Report 17457066 (Version 1)
Quarter: 2020Q1

REPORT INFORMATION
  Report Type: Spontaneous
  Country: US (occurrence: US)
  Receive Date: 20200225
  Receipt Date: 20200225
  Transmission Date: 20200409
  Serious: No
  Sender: FDA-Public Use
  Company Number: US-SA-2020SA047766

PATIENT
  Sex: Male
  Weight: 81.64 kg

DRUGS (3)
  1. DUPIXENT [Suspect]
     Active Substance: DUPILUMAB
     Indication: DERMATITIS ATOPIC
     Dosage: 300 MG, QOW
     Route: 058
  2. CYCLOSPORINE. [Concomitant]
     Active Substance: CYCLOSPORINE
  3. ASPIRIN 81 [Concomitant]
     Active Substance: ASPIRIN

REACTIONS (5)
  - Pruritus [Unknown]
  - Dry skin [Unknown]
  - Skin exfoliation [Unknown]
  - Skin fissures [Unknown]
  - Sleep disorder [Unknown]

NARRATIVE: CASE EVENT DATE: 202002
